FAERS Safety Report 7250247-4 (Version None)
Quarter: 2011Q1

REPORT INFORMATION
  Report Type: 
  Country: None (occurrence: None)
  Receive Date: 20110121
  Receipt Date: 20110121
  Transmission Date: 20110831
  Serious: No
  Sender: FDA-Public Use
  Company Number: None

PATIENT

DRUGS (2)
  1. NITROUS OXIDE W/ OXYGEN [Suspect]
     Indication: ANXIETY
     Dosage: 40% N2O USP MIXED WITH 60% O2 USP N/A INHALED
     Route: 055
     Dates: start: 20101220
  2. NITROUS OXIDE W/ OXYGEN [Suspect]
     Indication: DENTAL OPERATION
     Dosage: 40% N2O USP MIXED WITH 60% O2 USP N/A INHALED
     Route: 055
     Dates: start: 20101220

REACTIONS (5)
  - HEADACHE [None]
  - NAUSEA [None]
  - VOMITING [None]
  - DYSPNOEA [None]
  - UNEVALUABLE EVENT [None]
